FAERS Safety Report 5282081-9 (Version None)
Quarter: 2007Q1

REPORT INFORMATION
  Report Type: 
  Country: None (occurrence: None)
  Receive Date: 20070330
  Receipt Date: 20070316
  Transmission Date: 20070707
  Serious: Yes (Hospitalization, Other)
  Sender: FDA-Public Use
  Company Number: US-AMGEN-US215494

PATIENT
  Sex: Female

DRUGS (1)
  1. ENBREL [Suspect]
     Indication: SERONEGATIVE ARTHRITIS
     Route: 058

REACTIONS (11)
  - COUGH [None]
  - DERMATITIS [None]
  - ERYTHEMA MULTIFORME [None]
  - GRANULOMA [None]
  - HERPES SIMPLEX [None]
  - INFECTION [None]
  - INJECTION SITE PRURITUS [None]
  - JOINT EFFUSION [None]
  - MENORRHAGIA [None]
  - RASH MACULAR [None]
  - SINUSITIS [None]
